FAERS Safety Report 13056316 (Version 1)
Quarter: 2016Q4

REPORT INFORMATION
  Report Type: Spontaneous
  Country: US (occurrence: US)
  Receive Date: 20161222
  Receipt Date: 20161222
  Transmission Date: 20170207
  Serious: Yes (Other)
  Sender: FDA-Public Use
  Company Number: US-TEVA-723332USA

PATIENT
  Sex: Male

DRUGS (8)
  1. SINGULAIR [Concomitant]
     Active Substance: MONTELUKAST SODIUM
  2. PREDNISONE. [Suspect]
     Active Substance: PREDNISONE
     Indication: ASTHMA
     Route: 065
  3. FLONASE [Concomitant]
     Active Substance: FLUTICASONE PROPIONATE
  4. PREDNISONE. [Suspect]
     Active Substance: PREDNISONE
     Indication: LOWER RESPIRATORY TRACT INFECTION
  5. NEBULIZER [Concomitant]
     Active Substance: DEVICE
     Dosage: Q 4 HOURS
  6. PULMICORT TURBUHALER [Suspect]
     Active Substance: BUDESONIDE
     Route: 065
  7. BENADRYL [Concomitant]
     Active Substance: DIPHENHYDRAMINE HYDROCHLORIDE
  8. ADVAIR HFA [Concomitant]
     Active Substance: FLUTICASONE PROPIONATE\SALMETEROL XINAFOATE

REACTIONS (9)
  - Obstructive airways disorder [Unknown]
  - Feeling jittery [Unknown]
  - Dyspnoea exertional [Unknown]
  - Mental impairment [Unknown]
  - Decreased appetite [Unknown]
  - Asthenia [Unknown]
  - Swollen tongue [Recovering/Resolving]
  - Adverse event [Unknown]
  - Activities of daily living impaired [Unknown]
